FAERS Safety Report 7467770-X (Version None)
Quarter: 2011Q2

REPORT INFORMATION
  Report Type: 
  Country: None (occurrence: None)
  Receive Date: 20110509
  Receipt Date: 20110110
  Transmission Date: 20111010
  Serious: No
  Sender: FDA-Public Use
  Company Number: US-ALEXION-A201100034

PATIENT
  Sex: Male

DRUGS (5)
  1. SOLIRIS [Suspect]
     Indication: PAROXYSMAL NOCTURNAL HAEMOGLOBINURIA
     Dosage: 600 MG, QD
     Route: 042
     Dates: start: 20090710, end: 20090801
  2. SOLIRIS [Suspect]
     Dosage: 900 MG, Q2W
     Route: 042
     Dates: start: 20090801
  3. PREDNISONE [Concomitant]
     Dosage: UNK
  4. TESTOSTERONE [Suspect]
     Indication: BLOOD TESTOSTERONE DECREASED
     Dosage: 5 MG, QD
     Route: 062
     Dates: start: 20101101, end: 20101230
  5. FOLIC ACID [Concomitant]
     Dosage: 1 MG, QD

REACTIONS (4)
  - BLOOD TESTOSTERONE DECREASED [None]
  - INFLUENZA LIKE ILLNESS [None]
  - SLEEP PARALYSIS [None]
  - MENTAL DISORDER [None]
